FAERS Safety Report 5359213-7 (Version None)
Quarter: 2007Q2

REPORT INFORMATION
  Report Type: 
  Country: None (occurrence: None)
  Receive Date: 20070530
  Receipt Date: 20070329
  Transmission Date: 20071010
  Serious: No
  Sender: FDA-Public Use
  Company Number: 2007PV032660

PATIENT
  Age: 55 Year
  Sex: Female
  Weight: 174.1813 kg

DRUGS (5)
  1. BYETTA [Suspect]
     Indication: DIABETES MELLITUS NON-INSULIN-DEPENDENT
     Dosage: 5 MCG;BID;SC
     Route: 058
     Dates: start: 20070301
  2. GLUCOPHAGE XR [Concomitant]
  3. GLUCOPHAGE [Concomitant]
  4. GLIPIZIDE [Concomitant]
  5. VITAMIN CAP [Concomitant]

REACTIONS (5)
  - BLOOD GLUCOSE INCREASED [None]
  - CYSTITIS [None]
  - EAR INFECTION [None]
  - NAUSEA [None]
  - WEIGHT DECREASED [None]
